FAERS Safety Report 4982198-X (Version None)
Quarter: 2006Q2

REPORT INFORMATION
  Report Type: 
  Country: None (occurrence: None)
  Receive Date: 20060421
  Receipt Date: 20060405
  Transmission Date: 20061013
  Serious: Yes (Other)
  Sender: FDA-Public Use
  Company Number: US-2006-002624

PATIENT
  Age: 46 Year
  Sex: Female
  Weight: 51 kg

DRUGS (6)
  1. BETASERON [Suspect]
     Indication: RELAPSING-REMITTING MULTIPLE SCLEROSIS
     Dosage: 8 MIU, EVERY 2D, SUBCUTANEOUS
     Route: 058
     Dates: start: 20011001
  2. CLINDAMYCIN [Suspect]
     Indication: INJECTION SITE ABSCESS
  3. CONTRAST MEDIA [Concomitant]
  4. NEURONTIN [Concomitant]
  5. DETROL - SLOW RELEASE (TOLTERODINE L-TARTRATE) [Concomitant]
  6. NEXIUM [Concomitant]

REACTIONS (7)
  - BODY TEMPERATURE INCREASED [None]
  - CLOSTRIDIUM DIFFICILE COLITIS [None]
  - CONDITION AGGRAVATED [None]
  - INJECTION SITE ABSCESS [None]
  - INJECTION SITE NECROSIS [None]
  - MULTIPLE SCLEROSIS [None]
  - SARCOIDOSIS [None]
